FAERS Safety Report 5393277-X (Version None)
Quarter: 2007Q3

REPORT INFORMATION
  Report Type: 
  Country: None (occurrence: None)
  Receive Date: 20070723
  Receipt Date: 20070711
  Transmission Date: 20080115
  Serious: Yes (Other)
  Sender: FDA-Public Use
  Company Number: PHFR2007GB01425

PATIENT
  Age: 28 Year
  Sex: Male

DRUGS (2)
  1. CLOZARIL [Suspect]
     Dosage: 250MG DAILY
     Route: 048
     Dates: start: 19990316
  2. ATENOLOL [Concomitant]
     Route: 065

REACTIONS (4)
  - BUNDLE BRANCH BLOCK RIGHT [None]
  - ELECTROCARDIOGRAM ST-T CHANGE [None]
  - HEART RATE INCREASED [None]
  - SINUS TACHYCARDIA [None]
